FAERS Safety Report 7931722-3 (Version None)
Quarter: 2011Q4

REPORT INFORMATION
  Report Type: 
  Country: None (occurrence: None)
  Receive Date: 20111121
  Receipt Date: 20111115
  Transmission Date: 20120403
  Serious: Yes (Death)
  Sender: FDA-Public Use
  Company Number: PHHY2011GR100719

PATIENT

DRUGS (5)
  1. ANTI-THYMOCYTE GLOBULIN RABBIT NOS [Concomitant]
     Dosage: 2.5 MG/KG/DAY
  2. BUSULFAN [Concomitant]
     Dosage: UNK UKN, UNK
  3. CYCLOSPORINE [Suspect]
     Indication: STEM CELL TRANSPLANT
     Dosage: 3-6 MG/KG PER DAY
     Route: 042
  4. METHOTREXATE [Concomitant]
     Dosage: 15 MG/M2, UNK
  5. METHOTREXATE [Concomitant]
     Dosage: 10 MG/M2, UNK

REACTIONS (2)
  - CEREBRAL HAEMORRHAGE [None]
  - THROMBOCYTOPENIA [None]
